FAERS Safety Report 8516845-2 (Version None)
Quarter: 2012Q3

REPORT INFORMATION
  Report Type: 
  Country: None (occurrence: None)
  Receive Date: 20120718
  Receipt Date: 20120709
  Transmission Date: 20120928
  Serious: Yes (Death, Life-Threatening, Hospitalization)
  Sender: FDA-Public Use
  Company Number: FR-MILLENNIUM PHARMACEUTICALS, INC.-2012-01419

PATIENT

DRUGS (11)
  1. BISOPROLOL FUMARATE [Concomitant]
     Indication: HYPERTENSION
     Dosage: 2.5 MG, UNK
     Route: 048
  2. CLOPIDOGREL [Concomitant]
     Indication: CARDIAC DISORDER
  3. EZETIMIBE [Concomitant]
  4. PERINDOPRIL ERBUMINE [Concomitant]
     Indication: HYPERTENSION
     Dosage: 8 MG, UNK
     Route: 048
  5. DEXAMETHASONE [Suspect]
     Indication: MULTIPLE MYELOMA
     Dosage: 20 MG, UNK
     Route: 048
     Dates: start: 20111104, end: 20120207
  6. VELCADE [Suspect]
     Indication: MULTIPLE MYELOMA
     Dosage: 2.4 MG, UNK
     Route: 042
     Dates: end: 20120207
  7. CYCLOPHOSPHAMIDE [Suspect]
     Indication: MULTIPLE MYELOMA
     Dosage: 75 MG/M2, UNK
     Dates: start: 20111104, end: 20120207
  8. LERCANIDIPINE [Concomitant]
     Indication: HYPERTENSION
     Route: 048
  9. PLAVIX [Concomitant]
     Dosage: UNK
     Route: 048
  10. ACETAMINOPHEN [Concomitant]
  11. CODEINE PHOSPHATE AND ACETAMINOPHEN [Concomitant]

REACTIONS (3)
  - LUNG INFECTION [None]
  - DEATH [None]
  - MYOCARDIAL INFARCTION [None]
